FAERS Safety Report 4658607-2 (Version None)
Quarter: 2005Q2

REPORT INFORMATION
  Report Type: 
  Country: None (occurrence: None)
  Receive Date: 20050511
  Receipt Date: 20050429
  Transmission Date: 20051028
  Serious: Yes (Hospitalization)
  Sender: FDA-Public Use
  Company Number: AU-NOVOPROD-243950

PATIENT
  Age: 21 Year
  Sex: Female

DRUGS (2)
  1. ACTRAPID HM PENFILL [Suspect]
     Indication: DIABETES MELLITUS
  2. PROTAPHANE PENFILL [Suspect]
     Indication: DIABETES MELLITUS

REACTIONS (4)
  - BREECH DELIVERY [None]
  - CAESAREAN SECTION [None]
  - DIABETES MELLITUS INADEQUATE CONTROL [None]
  - DRUG EXPOSURE DURING PREGNANCY [None]
